FAERS Safety Report 21756496 (Version 1)
Quarter: 2022Q4

REPORT INFORMATION
  Report Type: Spontaneous
  Country: CA (occurrence: None)
  Receive Date: 20221220
  Receipt Date: 20221220
  Transmission Date: 20230113
  Serious: Yes (Hospitalization)
  Sender: FDA-Public Use
  Company Number: 2022A400832

PATIENT
  Age: 68 Year
  Sex: Female

DRUGS (2)
  1. BRILINTA [Suspect]
     Active Substance: TICAGRELOR
     Route: 048
  2. ASPIRIN [Suspect]
     Active Substance: ASPIRIN
     Route: 065

REACTIONS (6)
  - Blood urea increased [Unknown]
  - Haemoglobin decreased [Unknown]
  - Blood pressure systolic decreased [Unknown]
  - Gastrointestinal haemorrhage [Unknown]
  - Haematemesis [Unknown]
  - Melaena [Unknown]
